FAERS Safety Report 8502254-9 (Version None)
Quarter: 2012Q2

REPORT INFORMATION
  Report Type: 
  Country: None (occurrence: None)
  Receive Date: 20120405
  Receipt Date: 20100512
  Transmission Date: 20120825
  Serious: Yes (Disabling)
  Sender: FDA-Public Use
  Company Number: PHHY2010US31390

PATIENT
  Sex: Female
  Weight: 133 kg

DRUGS (1)
  1. RECLAST [Suspect]
     Dosage: , INFUSION
     Dates: start: 20100427

REACTIONS (3)
  - BONE PAIN [None]
  - BACK PAIN [None]
  - ARTHRALGIA [None]
